FAERS Safety Report 8624041-3 (Version None)
Quarter: 2012Q3

REPORT INFORMATION
  Report Type: 
  Country: None (occurrence: None)
  Receive Date: 20120827
  Receipt Date: 20120816
  Transmission Date: 20120928
  Serious: Yes (Other)
  Sender: FDA-Public Use
  Company Number: GB-ASTRAZENECA-2012SE55146

PATIENT
  Age: 25234 Day
  Sex: Male
  Weight: 77.5 kg

DRUGS (7)
  1. LACTULOSE [Concomitant]
     Route: 048
     Dates: start: 20120622
  2. ZD6474 [Suspect]
     Indication: TRANSITIONAL CELL CARCINOMA
     Route: 048
     Dates: start: 20120622, end: 20120801
  3. GEMCITABINE HYDROCHLORIDE [Suspect]
     Indication: TRANSITIONAL CELL CARCINOMA
     Dosage: 1900 MG, 30 MIN IV INFUSION, ON DAY 1 AND 8 OF EACH 21 DAY CYCLE
     Route: 042
     Dates: start: 20120622, end: 20120719
  4. TINZAPARIN [Concomitant]
     Dosage: 4500 INTERNATIONAL UNITS
     Route: 050
     Dates: start: 20120710
  5. ACETAMINOPHEN AND CODEINE PHOSPHATE [Concomitant]
     Dosage: 30/500, AS REQUIRED
     Route: 048
     Dates: start: 20120501
  6. CARBOPLATIN [Suspect]
     Indication: TRANSITIONAL CELL CARCINOMA
     Dosage: 300 MG, 30 MIN IV INFUSION, ON DAY 1 OF EACH 21 DAY CYCLE
     Route: 042
     Dates: start: 20120622, end: 20120711
  7. ACETAMINOPHEN AND CODEINE PHOSPHATE [Concomitant]
     Dosage: 8/500, TDS
     Route: 048
     Dates: start: 20120501

REACTIONS (1)
  - SUPRAVENTRICULAR TACHYCARDIA [None]
